FAERS Safety Report 5416849-2 (Version None)
Quarter: 2007Q3

REPORT INFORMATION
  Report Type: 
  Country: None (occurrence: None)
  Receive Date: 20070816
  Receipt Date: 20070808
  Transmission Date: 20080115
  Serious: Yes (Hospitalization, Other)
  Sender: FDA-Public Use
  Company Number: US-MERCK-0704USA01184

PATIENT
  Age: 72 Year
  Sex: Female

DRUGS (2)
  1. FOSAMAX [Suspect]
     Indication: OSTEOPOROSIS
     Route: 048
     Dates: start: 19990725
  2. FOSAMAX [Suspect]
     Route: 048
     Dates: end: 20050613

REACTIONS (20)
  - ANXIETY [None]
  - BONE DISORDER [None]
  - BRONCHITIS [None]
  - COUGH [None]
  - DENTAL CARIES [None]
  - DEPRESSION [None]
  - DRY MOUTH [None]
  - FEAR [None]
  - FIBROSIS [None]
  - GINGIVAL SWELLING [None]
  - HERPES ZOSTER [None]
  - JAW FRACTURE [None]
  - LIP SWELLING [None]
  - NASOPHARYNGITIS [None]
  - OSTEOMYELITIS [None]
  - OSTEONECROSIS [None]
  - PALPITATIONS [None]
  - PYREXIA [None]
  - RHINORRHOEA [None]
  - UPPER RESPIRATORY TRACT INFECTION [None]
